FAERS Safety Report 4714945-6 (Version None)
Quarter: 2005Q3

REPORT INFORMATION
  Report Type: 
  Country: None (occurrence: None)
  Receive Date: 20050715
  Receipt Date: 20040620
  Transmission Date: 20060218
  Serious: Yes (Other)
  Sender: FDA-Public Use
  Company Number: BE-JNJFOC-20040506320

PATIENT
  Sex: Male

DRUGS (6)
  1. PROPULSID [Suspect]
     Route: 048
  2. PROPULSID [Suspect]
     Route: 048
  3. OMPRAZOLE [Concomitant]
     Indication: GASTROOESOPHAGEAL REFLUX DISEASE
     Route: 048
  4. ATROVENT [Concomitant]
     Indication: BRONCHIAL HYPERACTIVITY
     Route: 055
  5. VENTOLIN [Concomitant]
     Indication: BRONCHIAL HYPERACTIVITY
     Route: 055
  6. PULMICORT [Concomitant]
     Indication: BRONCHIAL HYPERACTIVITY
     Route: 055

REACTIONS (1)
  - ELECTROCARDIOGRAM QT CORRECTED INTERVAL PROLONGED [None]
